APPROVED DRUG PRODUCT: ARGATROBAN IN SODIUM CHLORIDE
Active Ingredient: ARGATROBAN
Strength: 50MG/50ML (1MG/ML)
Dosage Form/Route: SOLUTION;INTRAVENOUS
Application: N209552 | Product #001
Applicant: EUGIA PHARMA SPECIALITIES LTD
Approved: Nov 27, 2018 | RLD: No | RS: No | Type: RX